FAERS Safety Report 7117995-8 (Version None)
Quarter: 2010Q4

REPORT INFORMATION
  Report Type: 
  Country: None (occurrence: None)
  Receive Date: 20101123
  Receipt Date: 20101111
  Transmission Date: 20110411
  Serious: Yes (Hospitalization)
  Sender: FDA-Public Use
  Company Number: IT-ASTRAZENECA-2010SE54134

PATIENT
  Age: 33754 Day
  Sex: Female

DRUGS (6)
  1. BLOPRESS [Suspect]
     Indication: HYPERTENSION
     Route: 048
     Dates: start: 20091001, end: 20100513
  2. BLOPRESS [Suspect]
     Dosage: 1/2 TABLET DAILY PER OS
     Route: 048
     Dates: start: 20100801, end: 20101029
  3. ASPIRIN [Concomitant]
     Route: 048
  4. ANTRA [Concomitant]
  5. TAVOR [Concomitant]
     Route: 048
  6. LAEVOLAC [Concomitant]

REACTIONS (5)
  - COUGH [None]
  - FATIGUE [None]
  - HYPOTENSION [None]
  - PRESYNCOPE [None]
  - SYNCOPE [None]
